FAERS Safety Report 6497679-X (Version None)
Quarter: 2009Q4

REPORT INFORMATION
  Report Type: 
  Country: None (occurrence: None)
  Receive Date: 20091211
  Receipt Date: 20091202
  Transmission Date: 20100525
  Serious: Yes (Disabling)
  Sender: FDA-Public Use
  Company Number: OSCN-NO-0910S-0471

PATIENT
  Age: 67 Year
  Sex: Female

DRUGS (1)
  1. OMNISCAN [Suspect]
     Indication: OSTEOARTHRITIS
     Dosage: 15 MG, SINGLE DOSE, I.V.
     Route: 042
     Dates: start: 20040503, end: 20040503

REACTIONS (6)
  - ADVERSE REACTION [None]
  - COLITIS COLLAGENOUS [None]
  - POLYNEUROPATHY [None]
  - RASH [None]
  - URINARY INCONTINENCE [None]
  - WOUND [None]
